FAERS Safety Report 24894718 (Version 1)
Quarter: 2025Q1

REPORT INFORMATION
  Report Type: Spontaneous
  Country: US (occurrence: None)
  Receive Date: 20250127
  Receipt Date: 20250127
  Transmission Date: 20250408
  Serious: Yes (Disabling, Other)
  Sender: FDA-CTU
  Company Number: None

PATIENT
  Age: 51 Year
  Sex: Female
  Weight: 112.5 kg

DRUGS (8)
  1. REXULTI [Suspect]
     Active Substance: BREXPIPRAZOLE
     Indication: Drug therapy
  2. VALSARTAN [Concomitant]
     Active Substance: VALSARTAN
  3. B12 injections [Concomitant]
  4. SERTRALINE [Concomitant]
     Active Substance: SERTRALINE HYDROCHLORIDE
  5. BC pills [Concomitant]
  6. AMITRIPTYLINE [Concomitant]
     Active Substance: AMITRIPTYLINE
  7. B1 [Concomitant]
  8. VITAMIN D3 [Concomitant]
     Active Substance: CHOLECALCIFEROL

REACTIONS (7)
  - Tardive dyskinesia [None]
  - Tremor [None]
  - Dizziness postural [None]
  - Muscle fatigue [None]
  - Dysstasia [None]
  - Gait inability [None]
  - Cognitive disorder [None]

NARRATIVE: CASE EVENT DATE: 20240115
